FAERS Safety Report 6217064-5 (Version None)
Quarter: 2009Q2

REPORT INFORMATION
  Report Type: 
  Country: None (occurrence: None)
  Receive Date: 20090606
  Receipt Date: 20090526
  Transmission Date: 20091009
  Serious: Yes (Hospitalization)
  Sender: FDA-Public Use
  Company Number: FR-PFIZER INC-2009217897

PATIENT
  Age: 83 Year

DRUGS (1)
  1. LYRICA [Suspect]
     Indication: PERIPHERAL SENSORY NEUROPATHY
     Dosage: 125 MG, 1X/DAY
     Route: 048
     Dates: start: 20081101, end: 20090217

REACTIONS (4)
  - DERMATITIS BULLOUS [None]
  - PEMPHIGOID [None]
  - PRURITUS [None]
  - RASH PAPULAR [None]
